FAERS Safety Report 17544505 (Version 1)
Quarter: 2020Q1

REPORT INFORMATION
  Report Type: Spontaneous
  Country: DE (occurrence: DE)
  Receive Date: 20200316
  Receipt Date: 20200316
  Transmission Date: 20200409
  Serious: Yes (Hospitalization, Other)
  Sender: FDA-Public Use
  Company Number: NVSC2020DE066970

PATIENT
  Age: 34 Year
  Sex: Female
  Weight: 67 kg

DRUGS (1)
  1. AMOXI 750 - 1 A PHARMA [Suspect]
     Active Substance: AMOXICILLIN
     Indication: CYSTITIS NONINFECTIVE
     Dosage: 750 MG, Q8H, (PZN 00658780)
     Route: 048
     Dates: start: 20191126, end: 20191130

REACTIONS (2)
  - Stillbirth [Unknown]
  - Vaginal haemorrhage [Unknown]

NARRATIVE: CASE EVENT DATE: 20191203
